FAERS Safety Report 18735696 (Version 1)
Quarter: 2021Q1

REPORT INFORMATION
  Report Type: Spontaneous
  Country: US (occurrence: US)
  Receive Date: 20210113
  Receipt Date: 20210113
  Transmission Date: 20210419
  Serious: No
  Sender: FDA-Public Use
  Company Number: None

PATIENT
  Age: 72 Year
  Sex: Female

DRUGS (17)
  1. ACETAMINOPHEN. [Concomitant]
     Active Substance: ACETAMINOPHEN
  2. VITAMIN B COMPLEX [Concomitant]
     Active Substance: CYANOCOBALAMIN\DEXPANTHENOL\NIACINAMIDE\PYRIDOXINE HYDROCHLORIDE\RIBOFLAVIN 5^-PHOSPHATE SODIUM\THIAMINE HYDROCHLORIDE\VITAMIN B COMPLEX
  3. CALCIUM CARBONATE ANTACID [Concomitant]
  4. FULVESTRANT. [Concomitant]
     Active Substance: FULVESTRANT
  5. CAPECITABINE 500MG [Suspect]
     Active Substance: CAPECITABINE
     Route: 048
  6. ROSUVASTATIN CALCIUM. [Concomitant]
     Active Substance: ROSUVASTATIN CALCIUM
  7. COENZYME Q10 [Concomitant]
     Active Substance: DIETARY SUPPLEMENT\UBIDECARENONE
  8. HERCEPTIN [Concomitant]
     Active Substance: TRASTUZUMAB
  9. PERJETA [Concomitant]
     Active Substance: PERTUZUMAB
  10. KLOR?CON M10 [Concomitant]
     Active Substance: POTASSIUM CHLORIDE
  11. LEVOTHYROXINE SODIUM. [Concomitant]
     Active Substance: LEVOTHYROXINE SODIUM
  12. METOPROLOL TARTRATE. [Concomitant]
     Active Substance: METOPROLOL TARTRATE
  13. OMEGA 3 [Concomitant]
     Active Substance: OMEGA-3 FATTY ACIDS
  14. SUCRALFATE. [Concomitant]
     Active Substance: SUCRALFATE
  15. WARFARIN SODIUM. [Concomitant]
     Active Substance: WARFARIN SODIUM
  16. FAMOTIDINE. [Concomitant]
     Active Substance: FAMOTIDINE
  17. XGEVA [Concomitant]
     Active Substance: DENOSUMAB

REACTIONS (3)
  - Gastrointestinal disorder [None]
  - Fatigue [None]
  - Malaise [None]

NARRATIVE: CASE EVENT DATE: 20210113
